FAERS Safety Report 4537160-8 (Version None)
Quarter: 2004Q4

REPORT INFORMATION
  Report Type: 
  Country: None (occurrence: None)
  Receive Date: 20041223
  Receipt Date: 20041008
  Transmission Date: 20050328
  Serious: Yes (Death)
  Sender: FDA-Public Use
  Company Number: PHBS2004JP13405

PATIENT
  Age: 77 Year
  Sex: Male

DRUGS (1)
  1. FASTIC #AJ [Suspect]
     Indication: DIABETES MELLITUS
     Dosage: 90 MG/DAY
     Route: 048
     Dates: start: 20040817, end: 20040916

REACTIONS (2)
  - OEDEMA PERIPHERAL [None]
  - PNEUMONIA [None]
